FAERS Safety Report 5580396-8 (Version None)
Quarter: 2007Q4

REPORT INFORMATION
  Report Type: 
  Country: None (occurrence: None)
  Receive Date: 20071226
  Receipt Date: 20071211
  Transmission Date: 20080405
  Serious: Yes (Death)
  Sender: FDA-Public Use
  Company Number: 2007EN000297

PATIENT
  Age: 27 Year
  Sex: Female

DRUGS (1)
  1. OPANA ER [Suspect]
     Dosage: INH
     Route: 055
     Dates: start: 20071201, end: 20071208

REACTIONS (6)
  - ACCIDENTAL OVERDOSE [None]
  - DRUG ABUSER [None]
  - INTENTIONAL DRUG MISUSE [None]
  - LOSS OF CONSCIOUSNESS [None]
  - UNRESPONSIVE TO STIMULI [None]
  - VOMITING [None]
